FAERS Safety Report 4319540-9 (Version None)
Quarter: 2004Q1

REPORT INFORMATION
  Report Type: 
  Country: None (occurrence: None)
  Receive Date: 20040316
  Receipt Date: 20040309
  Transmission Date: 20041129
  Serious: No
  Sender: FDA-Public Use
  Company Number: 2004UW04433

PATIENT
  Age: 78 Year
  Sex: Male
  Weight: 82.5547 kg

DRUGS (1)
  1. CRESTOR [Suspect]
     Indication: BLOOD CHOLESTEROL INCREASED
     Dosage: 10 MG PO
     Route: 048
     Dates: start: 20031101

REACTIONS (2)
  - MUSCLE HAEMORRHAGE [None]
  - MUSCLE RUPTURE [None]
